FAERS Safety Report 11660195 (Version 1)
Quarter: 2015Q4

REPORT INFORMATION
  Report Type: Spontaneous
  Country: US (occurrence: None)
  Receive Date: 20151023
  Receipt Date: 20151023
  Transmission Date: 20160304
  Serious: Yes (Hospitalization)
  Sender: FDA-Public Use
  Company Number: None

PATIENT
  Age: 67 Year
  Sex: Male
  Weight: 91.4 kg

DRUGS (1)
  1. ENOXAPARIN [Suspect]
     Active Substance: ENOXAPARIN
     Indication: DEEP VEIN THROMBOSIS
     Route: 048
     Dates: start: 20151002, end: 20151005

REACTIONS (4)
  - Blood creatine phosphokinase increased [None]
  - International normalised ratio decreased [None]
  - Traumatic haematoma [None]
  - Muscle haemorrhage [None]

NARRATIVE: CASE EVENT DATE: 20151021
